FAERS Safety Report 18383722 (Version 3)
Quarter: 2023Q1

REPORT INFORMATION
  Report Type: Report from Study
  Country: GB (occurrence: GB)
  Receive Date: 20201014
  Receipt Date: 20230111
  Transmission Date: 20230418
  Serious: Yes (Hospitalization)
  Sender: FDA-Public Use
  Company Number: GB-ROCHE-1609476

PATIENT
  Age: 50 Year
  Sex: Female

DRUGS (27)
  1. DOCETAXEL [Suspect]
     Active Substance: DOCETAXEL
     Indication: Breast cancer metastatic
     Dosage: 130 MILLIGRAM, Q3W, START: 30-JUN-2015
     Route: 042
     Dates: end: 20151106
  2. TRASTUZUMAB [Suspect]
     Active Substance: TRASTUZUMAB
     Indication: Breast cancer metastatic
     Dosage: 600 MILLIGRAM, Q3W, START; 29-JUN-2015
     Route: 058
  3. PERTUZUMAB [Suspect]
     Active Substance: PERTUZUMAB
     Indication: Breast cancer metastatic
     Dosage: 840 MILLIGRAM, Q3W
     Route: 042
     Dates: start: 20150629
  4. SERTRALINE [Concomitant]
     Active Substance: SERTRALINE HYDROCHLORIDE
     Dosage: 75 MILLIGRAM, QD, START: ??-DEC-2016
     Route: 048
     Dates: end: 201702
  5. SERTRALINE [Concomitant]
     Active Substance: SERTRALINE HYDROCHLORIDE
     Dosage: 50 MILLIGRAM, QD, START: ??-JAN-2016
     Route: 048
  6. SERTRALINE [Concomitant]
     Active Substance: SERTRALINE HYDROCHLORIDE
     Dosage: 50 MILLIGRAM, QD, START: ??-SEP-2017
     Route: 048
     Dates: end: 201711
  7. SERTRALINE [Concomitant]
     Active Substance: SERTRALINE HYDROCHLORIDE
     Dosage: 62.5 MILLIGRAM, QD, START: ??-FEB-2017
     Route: 048
     Dates: end: 201709
  8. SERTRALINE [Concomitant]
     Active Substance: SERTRALINE HYDROCHLORIDE
     Dosage: 100 MILLIGRAM, QD, START: 15-JUL-2016
     Route: 048
     Dates: end: 201612
  9. SERTRALINE [Concomitant]
     Active Substance: SERTRALINE HYDROCHLORIDE
     Dosage: 37.5 MILLIGRAM, QD, START: ??-NOV-2017
     Route: 048
     Dates: end: 201712
  10. SERTRALINE [Concomitant]
     Active Substance: SERTRALINE HYDROCHLORIDE
     Dosage: 12.5 MILLIGRAM, QD, START: ??-DEC-2017
     Route: 048
     Dates: end: 201803
  11. LITHIUM [Concomitant]
     Active Substance: LITHIUM
     Dosage: 500 MILLIGRAM, QD, START: ??-SEP-2017
     Route: 048
     Dates: end: 201712
  12. LITHIUM [Concomitant]
     Active Substance: LITHIUM
     Dosage: 400 MILLIGRAM, QD, START: ??-DEC-2017
     Route: 048
     Dates: end: 20181222
  13. LITHIUM [Concomitant]
     Active Substance: LITHIUM
     Dosage: 250 MILLIGRAM, QD, START: 23-DEC-2018
     Route: 048
     Dates: end: 20190312
  14. LITHIUM [Concomitant]
     Active Substance: LITHIUM
     Dosage: 150 MILLIGRAM, QD, START: 13-MAR-2019
     Route: 048
  15. LITHIUM [Concomitant]
     Active Substance: LITHIUM
     Dosage: 400 MILLIGRAM, QD, START: 02-DEC-2016
     Route: 048
     Dates: end: 201709
  16. DIAZEPAM [Concomitant]
     Active Substance: DIAZEPAM
     Dosage: 6.5 MILLIGRAM, QD, START: ??-DEC-2016
     Route: 048
     Dates: end: 201712
  17. DIAZEPAM [Concomitant]
     Active Substance: DIAZEPAM
     Dosage: 3.5 MILLIGRAM, QD, START: ??-DEC-2017
     Route: 048
  18. DIAZEPAM [Concomitant]
     Active Substance: DIAZEPAM
     Dosage: 4 MILLIGRAM, QD, START: ??-SEP-2017
     Route: 048
     Dates: end: 201712
  19. PYRIDOXINE [Concomitant]
     Active Substance: PYRIDOXINE
     Indication: Neuropathy peripheral
     Dosage: 50 MILLIGRAM, TID, START: 07-AUG-2015
     Route: 048
  20. LIOTHYRONINE [Concomitant]
     Active Substance: LIOTHYRONINE
     Dosage: 10 MILLIGRAM, QD, START: 27-SEP-2016
     Route: 048
  21. MIRTAZAPINE [Concomitant]
     Active Substance: MIRTAZAPINE
     Dosage: 15 MILLIGRAM, QD, START: ??-SEP-2017
     Route: 048
     Dates: end: 201712
  22. MIRTAZAPINE [Concomitant]
     Active Substance: MIRTAZAPINE
     Dosage: 30 MILLIGRAM, QD, START: ??-???-2016
     Route: 048
     Dates: end: 20160715
  23. MIRTAZAPINE [Concomitant]
     Active Substance: MIRTAZAPINE
     Dosage: 3.75 MILLIGRAM, QD, START: ??-MAR-2018
     Route: 048
     Dates: end: 201807
  24. MIRTAZAPINE [Concomitant]
     Active Substance: MIRTAZAPINE
     Dosage: 15 MILLIGRAM, QD, START: 16-JUL-201
     Route: 048
     Dates: end: 201612
  25. MIRTAZAPINE [Concomitant]
     Active Substance: MIRTAZAPINE
     Dosage: 15 MILLIGRAM, QD
     Route: 048
     Dates: end: 2016
  26. MIRTAZAPINE [Concomitant]
     Active Substance: MIRTAZAPINE
     Dosage: 7.5 MILLIGRAM, QD, START: ??-DEC-2017
     Route: 048
     Dates: end: 201803
  27. MIRTAZAPINE [Concomitant]
     Active Substance: MIRTAZAPINE
     Dosage: 30 MILLIGRAM, QD, START: ??-DEC-2016
     Route: 048
     Dates: end: 201803

REACTIONS (4)
  - Neutropenic sepsis [Recovered/Resolved]
  - Osteopenia [Not Recovered/Not Resolved]
  - Bursitis [Recovered/Resolved]
  - Breast pain [Recovered/Resolved]

NARRATIVE: CASE EVENT DATE: 20150709
